FAERS Safety Report 9502882 (Version 1)
Quarter: 2013Q3

REPORT INFORMATION
  Report Type: Spontaneous
  Country: US (occurrence: US)
  Receive Date: 20130906
  Receipt Date: 20130906
  Transmission Date: 20140515
  Serious: No
  Sender: FDA-Public Use
  Company Number: US-TEVA-430155USA

PATIENT
  Sex: Female

DRUGS (6)
  1. PROAIR HFA [Suspect]
     Indication: ASTHMA
     Route: 055
  2. SPIRIVA [Concomitant]
     Indication: ASTHMA
     Dosage: 1 PUFF DAILY
  3. ADVAIR [Concomitant]
     Indication: ASTHMA
     Dosage: 2 PUFFS BID
  4. SINGULAIR [Concomitant]
     Indication: HYPERSENSITIVITY
     Dosage: DAILY
     Route: 048
  5. PREMARIN [Concomitant]
     Dosage: DAILY
     Route: 048
  6. NEXIUM [Concomitant]
     Indication: GASTROOESOPHAGEAL REFLUX DISEASE
     Dosage: DAILY
     Route: 048

REACTIONS (5)
  - Muscle spasms [Not Recovered/Not Resolved]
  - Chest discomfort [Unknown]
  - Cough [Unknown]
  - Bronchitis [Not Recovered/Not Resolved]
  - Pain [Unknown]
